FAERS Safety Report 6806604-0 (Version None)
Quarter: 2010Q2

REPORT INFORMATION
  Report Type: 
  Country: None (occurrence: None)
  Receive Date: 20100629
  Receipt Date: 20080613
  Transmission Date: 20101027
  Serious: No
  Sender: FDA-Public Use
  Company Number: US-PFIZER INC-2008025944

PATIENT
  Sex: Male
  Weight: 72.727 kg

DRUGS (5)
  1. VIAGRA [Suspect]
     Route: 048
     Dates: start: 20040101
  2. ALL OTHER THERAPEUTIC PRODUCTS [Concomitant]
  3. CORDRAN [Concomitant]
  4. METROGEL [Concomitant]
  5. DIAZEPAM [Concomitant]

REACTIONS (2)
  - DRUG INEFFECTIVE [None]
  - NASAL CONGESTION [None]
